FAERS Safety Report 11776347 (Version 1)
Quarter: 2015Q4

REPORT INFORMATION
  Report Type: Spontaneous
  Country: US (occurrence: US)
  Receive Date: 20151125
  Receipt Date: 20151125
  Transmission Date: 20160304
  Serious: Yes (Other)
  Sender: FDA-Public Use
  Company Number: US-BEH-2015055942

PATIENT
  Sex: Female
  Weight: 56 kg

DRUGS (30)
  1. PROVENTIL [Concomitant]
     Active Substance: ALBUTEROL
  2. LEVSIN-SL [Concomitant]
  3. ACIDOPHILUS PROBIOTIC [Concomitant]
  4. XOLAIR [Concomitant]
     Active Substance: OMALIZUMAB
  5. EPIPEN [Concomitant]
     Active Substance: EPINEPHRINE
  6. EVENING PRIMROSE [Concomitant]
  7. OXYGEN. [Concomitant]
     Active Substance: OXYGEN
  8. LIPITOR [Concomitant]
     Active Substance: ATORVASTATIN CALCIUM
  9. ALBUTEROL. [Concomitant]
     Active Substance: ALBUTEROL
  10. SYMBICORT [Concomitant]
     Active Substance: BUDESONIDE\FORMOTEROL FUMARATE DIHYDRATE
  11. ALBUTEROL SULFATE. [Concomitant]
     Active Substance: ALBUTEROL SULFATE
  12. HIZENTRA [Suspect]
     Active Substance: HUMAN IMMUNOGLOBULIN G
     Indication: ASTHMA
     Route: 058
  13. PREDNISONE. [Concomitant]
     Active Substance: PREDNISONE
  14. ADVIL [Concomitant]
     Active Substance: IBUPROFEN
  15. COMPLETE MULTIVITAMIN [Concomitant]
     Active Substance: VITAMINS
  16. HIZENTRA [Suspect]
     Active Substance: HUMAN IMMUNOGLOBULIN G
     Indication: ASTHMA
     Route: 058
  17. PREDNISOLONE. [Concomitant]
     Active Substance: PREDNISOLONE
  18. LIDOCAINE. [Concomitant]
     Active Substance: LIDOCAINE
  19. DOXYCYCLINE. [Concomitant]
     Active Substance: DOXYCYCLINE
  20. SPIRIVA [Concomitant]
     Active Substance: TIOTROPIUM BROMIDE MONOHYDRATE
  21. CALCIUM 600+D3 [Concomitant]
     Active Substance: CALCIUM CARBONATE\VITAMIN D
  22. LIDOCAINE/PRILOCAINE [Concomitant]
  23. LMX [Concomitant]
     Active Substance: LIDOCAINE
  24. SINGULAIR [Concomitant]
     Active Substance: MONTELUKAST SODIUM
  25. DIPHENHYDRAMINE. [Concomitant]
     Active Substance: DIPHENHYDRAMINE
  26. GAS-X [Concomitant]
     Active Substance: DIMETHICONE
  27. HYOSCYAMINE SULFATE. [Concomitant]
     Active Substance: HYOSCYAMINE SULFATE
  28. FLUTICASONE PROPIONATE. [Concomitant]
     Active Substance: FLUTICASONE PROPIONATE
  29. LOSARTAN HYDROCHLOROTHIAZIDE [Concomitant]
     Active Substance: HYDROCHLOROTHIAZIDE\LOSARTAN POTASSIUM
  30. TRIAMTERENE-HCTZ [Concomitant]
     Active Substance: HYDROCHLOROTHIAZIDE\TRIAMTERENE

REACTIONS (1)
  - Lung infection [Unknown]
